FAERS Safety Report 17544276 (Version 1)
Quarter: 2020Q1

REPORT INFORMATION
  Report Type: Spontaneous
  Country: PL (occurrence: PL)
  Receive Date: 20200316
  Receipt Date: 20200316
  Transmission Date: 20200409
  Serious: Yes (Hospitalization)
  Sender: FDA-Public Use
  Company Number: NVSC2020PL060375

PATIENT
  Age: 8 Year
  Sex: Female
  Weight: 24.8 kg

DRUGS (1)
  1. OSPAMOX [Suspect]
     Active Substance: AMOXICILLIN
     Indication: OROPHARYNGEAL PAIN
     Dosage: 90MG/KG OF BODY WEIGHT
     Route: 048
     Dates: start: 20170226, end: 20170301

REACTIONS (10)
  - Hepatitis [Recovering/Resolving]
  - Infectious mononucleosis [Recovering/Resolving]
  - Lymphadenopathy [Recovering/Resolving]
  - Pharyngitis [Recovering/Resolving]
  - Rash macular [Recovered/Resolved]
  - Pyrexia [Recovering/Resolving]
  - Tonsillar hypertrophy [Recovering/Resolving]
  - Dizziness [Recovering/Resolving]
  - Hepatosplenomegaly [Recovering/Resolving]
  - Eyelid oedema [Recovering/Resolving]

NARRATIVE: CASE EVENT DATE: 20170301
